FAERS Safety Report 9640471 (Version 2)
Quarter: 2013Q4

REPORT INFORMATION
  Report Type: Report from Study
  Country: US (occurrence: US)
  Receive Date: 20131023
  Receipt Date: 20131023
  Transmission Date: 20140711
  Serious: No
  Sender: FDA-Public Use
  Company Number: US-ABBVIE-13P-163-1054236-00

PATIENT
  Sex: Female

DRUGS (16)
  1. LUPRON DEPOT [Suspect]
     Indication: ENDOMETRIOSIS
     Route: 030
     Dates: start: 200908, end: 201004
  2. LUPRON DEPOT [Suspect]
     Route: 030
     Dates: start: 201012, end: 201212
  3. LUPRON DEPOT [Suspect]
     Route: 030
     Dates: start: 20130116
  4. VITAMIN C [Concomitant]
     Indication: VITAMIN SUPPLEMENTATION
  5. K-DUR [Concomitant]
  6. ZOMIG [Concomitant]
     Indication: MIGRAINE
     Dosage: NASAL SPRAY
     Route: 045
  7. ALBUTEROL [Concomitant]
     Indication: ASTHMA
  8. ALLEGRA [Concomitant]
     Indication: PRODUCT USED FOR UNKNOWN INDICATION
     Dosage: AT NIGHT
  9. FLONASE [Concomitant]
     Indication: PRODUCT USED FOR UNKNOWN INDICATION
     Dosage: 2 SPRAYS EACH NOSTRIL TWICE DAILY
  10. AGESTIN [Concomitant]
     Indication: PRODUCT USED FOR UNKNOWN INDICATION
     Dates: start: 200908
  11. SEASONIQUE [Concomitant]
     Indication: MIGRAINE
     Dates: start: 201004
  12. VITAMIN E [Concomitant]
     Indication: VITAMIN SUPPLEMENTATION
  13. FISH OIL [Concomitant]
     Indication: MINERAL SUPPLEMENTATION
  14. VITAMIN D [Concomitant]
     Indication: VITAMIN SUPPLEMENTATION
  15. CALCIUM [Concomitant]
     Indication: MINERAL SUPPLEMENTATION
  16. MULTIVITAMIN [Concomitant]
     Indication: VITAMIN SUPPLEMENTATION

REACTIONS (5)
  - Hypertension [Unknown]
  - Hot flush [Recovering/Resolving]
  - Migraine [Unknown]
  - Metrorrhagia [Unknown]
  - Blood oestrogen decreased [Unknown]
